FAERS Safety Report 5566420-7 (Version None)
Quarter: 2007Q4

REPORT INFORMATION
  Report Type: 
  Country: None (occurrence: None)
  Receive Date: 20071219
  Receipt Date: 20071207
  Transmission Date: 20080405
  Serious: Yes (Hospitalization)
  Sender: FDA-Public Use
  Company Number: AU-AMGEN-US253991

PATIENT
  Sex: Male
  Weight: 80 kg

DRUGS (5)
  1. PANITUMUMAB [Suspect]
     Indication: COLORECTAL CANCER
     Route: 042
     Dates: start: 20070919, end: 20071114
  2. FLUOROURACIL [Suspect]
     Route: 042
     Dates: start: 20070919, end: 20071114
  3. FLUOROURACIL [Suspect]
     Route: 042
     Dates: start: 20070919
  4. LEUCOVORIN CALCIUM [Suspect]
     Route: 065
     Dates: start: 20070919, end: 20071114
  5. IRINOTECAN HCL [Suspect]
     Route: 065
     Dates: start: 20070919, end: 20071114

REACTIONS (1)
  - SMALL INTESTINAL OBSTRUCTION [None]
